FAERS Safety Report 6024115-X (Version None)
Quarter: 2008Q4

REPORT INFORMATION
  Report Type: 
  Country: None (occurrence: None)
  Receive Date: 20081224
  Receipt Date: 20081215
  Transmission Date: 20090506
  Serious: Yes (Life-Threatening, Hospitalization)
  Sender: FDA-Public Use
  Company Number: 2008S1017906

PATIENT
  Age: 59 Year
  Sex: Female

DRUGS (13)
  1. GLIMEPIRIDE [Suspect]
     Indication: MEDICATION ERROR
     Dosage: 1 MG;TABLET;ORAL;3 TIMES A DAY
     Route: 048
     Dates: start: 20080801, end: 20081001
  2. PROPRANOLOL [Suspect]
     Dosage: 5 DF;ORAL
     Route: 048
     Dates: start: 20081001, end: 20081002
  3. ISOCARD /00586302/ (ISOSORBIDE MONONITRATE) [Suspect]
     Dates: start: 20081001, end: 20081002
  4. ALPRAZOLAM [Concomitant]
  5. FLECAINIDE ACETATE [Concomitant]
  6. ASPIRIN [Concomitant]
  7. VALSARTAN [Concomitant]
  8. XANAX [Concomitant]
  9. SEROPLEX (ESCITALOPRAM OXALATE) [Concomitant]
  10. ZOLPIDEM TARTRATE [Concomitant]
  11. CERIS (TROSPIUM CHLORIDE) [Concomitant]
  12. MEPRONIZINE (CLINDORM) [Concomitant]
  13. DOLIPRAINE (PARACETAMOL) [Concomitant]

REACTIONS (11)
  - ACCIDENTAL POISONING [None]
  - ASTHENIA [None]
  - BRADYCARDIA [None]
  - CHILLS [None]
  - COLD SWEAT [None]
  - HYPERTENSION [None]
  - HYPOGLYCAEMIC COMA [None]
  - HYPOTHERMIA [None]
  - PALPITATIONS [None]
  - VERTIGO [None]
  - WRONG DRUG ADMINISTERED [None]
